FAERS Safety Report 6087364-0 (Version None)
Quarter: 2009Q1

REPORT INFORMATION
  Report Type: 
  Country: None (occurrence: None)
  Receive Date: 20090223
  Receipt Date: 20090210
  Transmission Date: 20090719
  Serious: Yes (Death)
  Sender: FDA-Public Use
  Company Number: B0559708A

PATIENT
  Age: 90 Year
  Sex: Female

DRUGS (8)
  1. AVANDIA [Suspect]
     Dosage: 4MG PER DAY
     Route: 048
     Dates: start: 20060607, end: 20070101
  2. DIAMICRON [Concomitant]
     Route: 048
  3. ACARBOSE [Concomitant]
     Route: 048
  4. TENORETIC 100 [Concomitant]
  5. HYPERIUM [Concomitant]
  6. AMLOR [Concomitant]
  7. LIPANTHYL [Concomitant]
  8. KARDEGIC [Concomitant]

REACTIONS (1)
  - DEATH [None]
